FAERS Safety Report 8623142-3 (Version None)
Quarter: 2012Q3

REPORT INFORMATION
  Report Type: 
  Country: None (occurrence: None)
  Receive Date: 20120827
  Receipt Date: 20120817
  Transmission Date: 20120928
  Serious: Yes (Other)
  Sender: FDA-Public Use
  Company Number: FI-JNJFOC-20120808256

PATIENT
  Sex: Female

DRUGS (5)
  1. REMICADE [Suspect]
     Indication: COLITIS ULCERATIVE
     Dosage: STRENGTH 100 MG
     Route: 042
     Dates: start: 20120601
  2. REMICADE [Suspect]
     Route: 042
  3. REMICADE [Suspect]
     Dosage: STRENGTH 100 MG
     Route: 042
     Dates: start: 20120705, end: 20120705
  4. PENTASA [Concomitant]
     Indication: COLITIS ULCERATIVE
     Dosage: TOTAL DAILY DOSE 3 G
     Route: 048
     Dates: start: 20110701
  5. SOLU-CORTEF [Concomitant]
     Indication: PREMEDICATION
     Route: 042

REACTIONS (4)
  - ANAPHYLACTIC REACTION [None]
  - TYPE IV HYPERSENSITIVITY REACTION [None]
  - INFUSION RELATED REACTION [None]
  - PRURITUS [None]
